FAERS Safety Report 19931330 (Version 1)
Quarter: 2021Q4

REPORT INFORMATION
  Report Type: Spontaneous
  Country: FR (occurrence: FR)
  Receive Date: 20211007
  Receipt Date: 20211007
  Transmission Date: 20220303
  Serious: Yes (Hospitalization, Other)
  Sender: FDA-Public Use
  Company Number: None

PATIENT
  Age: 72 Year
  Sex: Male
  Weight: 61.2 kg

DRUGS (7)
  1. PANTOPRAZOLE [Suspect]
     Active Substance: PANTOPRAZOLE
     Indication: Prophylaxis
     Dosage: 20 MILLIGRAM
     Route: 048
  2. PREGABALIN [Suspect]
     Active Substance: PREGABALIN
     Indication: Product used for unknown indication
     Dosage: 150 MILLIGRAM
     Route: 048
  3. BISOPROLOL [Suspect]
     Active Substance: BISOPROLOL
     Indication: Aortic bypass
     Dosage: 1.25 MILLIGRAM
     Route: 048
  4. ATORVASTATIN [Suspect]
     Active Substance: ATORVASTATIN
     Indication: Prophylaxis
     Dosage: 40 MILLIGRAM
     Route: 048
  5. FLUCONAZOLE [Suspect]
     Active Substance: FLUCONAZOLE
     Indication: Infection
     Dosage: 200 MILLIGRAM
     Route: 048
     Dates: start: 202008
  6. ASPIRIN [Suspect]
     Active Substance: ASPIRIN
     Indication: Prophylaxis
     Dosage: 200 MILLIGRAM
     Route: 048
  7. APIXABAN [Suspect]
     Active Substance: APIXABAN
     Indication: Prophylaxis
     Dosage: 10 MILLIGRAM
     Route: 048
     Dates: end: 20210505

REACTIONS (1)
  - Pancreatitis [Not Recovered/Not Resolved]

NARRATIVE: CASE EVENT DATE: 20210504
